FAERS Safety Report 20826580 (Version 1)
Quarter: 2022Q2

REPORT INFORMATION
  Report Type: Spontaneous
  Country: US (occurrence: US)
  Receive Date: 20220513
  Receipt Date: 20220513
  Transmission Date: 20220721
  Serious: No
  Sender: FDA-Public Use
  Company Number: US-BRISTOL-MYERS SQUIBB COMPANY-2022-034325

PATIENT
  Sex: Female
  Weight: 48.53 kg

DRUGS (1)
  1. ELIQUIS [Suspect]
     Active Substance: APIXABAN
     Indication: Cerebrovascular accident prophylaxis
     Route: 048
     Dates: start: 201906

REACTIONS (4)
  - Visual impairment [Unknown]
  - Pruritus [Unknown]
  - Contusion [Unknown]
  - Product packaging counterfeit [Unknown]
